FAERS Safety Report 9343663 (Version 1)
Quarter: 2013Q2

REPORT INFORMATION
  Report Type: Spontaneous
  Country: JP (occurrence: None)
  Receive Date: 20130610
  Receipt Date: 20130610
  Transmission Date: 20140414
  Serious: Yes (Other)
  Sender: FDA-Public Use
  Company Number: 2013-001788

PATIENT
  Sex: 0

DRUGS (1)
  1. RISEDRONATE SODIUM [Suspect]
     Indication: OSTEOPOROSIS
     Route: 048

REACTIONS (1)
  - Volvulus [None]
